FAERS Safety Report 6754851-9 (Version None)
Quarter: 2010Q2

REPORT INFORMATION
  Report Type: 
  Country: None (occurrence: None)
  Receive Date: 20100603
  Receipt Date: 20100601
  Transmission Date: 20101027
  Serious: Yes (Other)
  Sender: FDA-Public Use
  Company Number: FR-MERCK-1004FRA00057

PATIENT
  Age: 79 Year
  Sex: Female

DRUGS (12)
  1. SITAGLIPTIN PHOSPHATE [Suspect]
     Indication: TYPE 2 DIABETES MELLITUS
     Route: 048
     Dates: start: 20090101, end: 20090101
  2. SITAGLIPTIN PHOSPHATE [Suspect]
     Route: 048
     Dates: start: 20090101, end: 20090101
  3. ASPIRIN LYSINE [Concomitant]
     Route: 048
  4. ATENOLOL [Concomitant]
     Route: 048
  5. ATORVASTATIN [Concomitant]
     Route: 048
  6. CLOMIPRAMINE HYDROCHLORIDE [Concomitant]
     Route: 048
  7. CLOPIDOGREL BISULFATE [Concomitant]
     Route: 048
  8. HYDROXYZINE [Concomitant]
     Route: 048
  9. INSULIN DETEMIR [Concomitant]
     Indication: TYPE 2 DIABETES MELLITUS
     Route: 051
  10. IRBESARTAN [Suspect]
     Route: 048
  11. LANSOPRAZOLE [Concomitant]
     Route: 048
  12. REPAGLINIDE [Concomitant]
     Indication: TYPE 2 DIABETES MELLITUS
     Route: 048

REACTIONS (3)
  - ANGIOEDEMA [None]
  - DRUG INTERACTION [None]
  - DYSPNOEA [None]
